FAERS Safety Report 10399091 (Version 1)
Quarter: 2014Q1

REPORT INFORMATION
  Report Type: Spontaneous
  Country: US (occurrence: None)
  Receive Date: 20130815
  Receipt Date: 20130815
  Transmission Date: 20141002
  Serious: Yes (Life-Threatening, Hospitalization, Other)
  Sender: FDA-Public Use
  Company Number: ADR-2012-01253

PATIENT
  Sex: Male

DRUGS (3)
  1. BACLOFEN INTRATHECAL [Suspect]
     Indication: POST LAMINECTOMY SYNDROME
  2. BACLOFEN INTRATHECAL [Suspect]
     Indication: PAIN
  3. MORPHINE, BUPIVACAINE [Concomitant]

REACTIONS (7)
  - Asthenia [None]
  - Abasia [None]
  - Loss of consciousness [None]
  - Blood pressure increased [None]
  - Hypoaesthesia [None]
  - Vision blurred [None]
  - Acute respiratory failure [None]
